FAERS Safety Report 5649158-7 (Version None)
Quarter: 2008Q1

REPORT INFORMATION
  Report Type: 
  Country: None (occurrence: None)
  Receive Date: 20080304
  Receipt Date: 20080228
  Transmission Date: 20080703
  Serious: Yes (Other)
  Sender: FDA-Public Use
  Company Number: US-ALLERGAN-0802397US

PATIENT
  Sex: Female

DRUGS (4)
  1. ALPHAGAN P [Suspect]
     Indication: GLAUCOMA
     Dosage: UNK, UNKNOWN
     Route: 047
     Dates: end: 20080222
  2. ALPHAGAN P [Suspect]
     Dosage: UNK, UNKNOWN
     Route: 047
     Dates: end: 20080227
  3. PRED FORTE [Suspect]
     Indication: INFLAMMATION
     Dosage: UNK, UNKNOWN
     Route: 047
     Dates: end: 20080219
  4. AVASTIN [Concomitant]
     Indication: ANGIOPATHY
     Dosage: UNK, SINGLE
     Route: 065
     Dates: start: 20080213, end: 20080213

REACTIONS (2)
  - INTRAOCULAR PRESSURE INCREASED [None]
  - VISUAL DISTURBANCE [None]
